FAERS Safety Report 5210965-6 (Version None)
Quarter: 2007Q1

REPORT INFORMATION
  Report Type: 
  Country: None (occurrence: None)
  Receive Date: 20070117
  Receipt Date: 20070108
  Transmission Date: 20070707
  Serious: Yes (Disabling)
  Sender: FDA-Public Use
  Company Number: GB-PFIZER INC-2007002663

PATIENT
  Sex: Female

DRUGS (6)
  1. LIPITOR [Suspect]
     Route: 048
  2. BENDROFLUMETHIAZIDE [Suspect]
     Route: 048
  3. ATENOLOL [Suspect]
     Route: 048
  4. RANITIDINE [Suspect]
     Route: 048
  5. RALOXIFENE HCL [Suspect]
     Route: 048
  6. RAMIPRIL [Suspect]
     Route: 048

REACTIONS (2)
  - BACK PAIN [None]
  - PHYSICAL DISABILITY [None]
